FAERS Safety Report 11254739 (Version 1)
Quarter: 2015Q3

REPORT INFORMATION
  Report Type: Spontaneous
  Country: US (occurrence: None)
  Receive Date: 20150708
  Receipt Date: 20150708
  Transmission Date: 20151125
  Serious: Yes (Hospitalization, Other)
  Sender: FDA-Public Use
  Company Number: None

PATIENT
  Age: 2 Month
  Sex: Female
  Weight: 72.58 kg

DRUGS (13)
  1. PROGESTERONE. [Concomitant]
     Active Substance: PROGESTERONE
  2. MULTIVITAMIN [Concomitant]
     Active Substance: VITAMINS
  3. CALCIUM [Concomitant]
     Active Substance: CALCIUM
  4. VITAMIN D [Concomitant]
     Active Substance: CHOLECALCIFEROL
  5. MELATONIN [Concomitant]
     Active Substance: MELATONIN
  6. MAGNESIUM [Concomitant]
     Active Substance: MAGNESIUM
  7. ADDERALL XR [Concomitant]
     Active Substance: AMPHETAMINE ASPARTATE\AMPHETAMINE SULFATE\DEXTROAMPHETAMINE SACCHARATE\DEXTROAMPHETAMINE SULFATE
  8. XYREM [Concomitant]
     Active Substance: SODIUM OXYBATE
  9. VITAMIN C [Concomitant]
     Active Substance: ASCORBIC ACID
  10. GLUCOSAMINE CHONDROITIN [Concomitant]
     Active Substance: CHONDROITIN SULFATE (BOVINE)\GLUCOSAMINE HYDROCHLORIDE
  11. BACTRIM DS [Suspect]
     Active Substance: SULFAMETHOXAZOLE\TRIMETHOPRIM
     Indication: PARONYCHIA
     Dosage: TAKEN BY MOUTH
     Route: 048
     Dates: start: 20150624, end: 20150702
  12. ARMOUR THYROID [Concomitant]
     Active Substance: THYROID, PORCINE\THYROID, UNSPECIFIED
  13. PROZAC [Concomitant]
     Active Substance: FLUOXETINE HYDROCHLORIDE

REACTIONS (6)
  - Headache [None]
  - White blood cell count decreased [None]
  - Pyrexia [None]
  - Blood potassium decreased [None]
  - Vomiting projectile [None]
  - Platelet count decreased [None]

NARRATIVE: CASE EVENT DATE: 20150704
